FAERS Safety Report 24548863 (Version 1)
Quarter: 2024Q4

REPORT INFORMATION
  Report Type: Spontaneous
  Country: AT (occurrence: AT)
  Receive Date: 20241025
  Receipt Date: 20241025
  Transmission Date: 20250115
  Serious: Yes (Other)
  Sender: DAIICHI
  Company Number: AT-DSJP-DS-2024-103497-AT

PATIENT
  Sex: Female

DRUGS (1)
  1. TRASTUZUMAB DERUXTECAN [Suspect]
     Active Substance: TRASTUZUMAB DERUXTECAN
     Indication: Ovarian cancer
     Dosage: 5.4 MG/KG, CYCLIC
     Route: 065

REACTIONS (2)
  - Immunodeficiency [Unknown]
  - Off label use [Unknown]
